FAERS Safety Report 13924744 (Version 2)
Quarter: 2017Q3

REPORT INFORMATION
  Report Type: Report from Study
  Country: BR (occurrence: BR)
  Receive Date: 20170831
  Receipt Date: 20170911
  Transmission Date: 20171127
  Serious: Yes (Other)
  Sender: FDA-Public Use
  Company Number: BR-PFIZER INC-2017119467

PATIENT
  Age: 66 Year
  Sex: Female
  Weight: 99 kg

DRUGS (6)
  1. IBRANCE [Suspect]
     Active Substance: PALBOCICLIB
     Dosage: 125 MG, CYCLIC (ONE CAPSULE PER DAY DURING 21 DAYS)
     Route: 048
  2. ZOLEDRONIC ACID. [Suspect]
     Active Substance: ZOLEDRONIC ACID
     Dosage: UNK, EVERY 3 MONTHS
  3. IBRANCE [Suspect]
     Active Substance: PALBOCICLIB
     Indication: BREAST CANCER
     Dosage: 125 MG, CYCLIC (ONE CAPSULE PER DAY DURING 21 DAYS)
     Route: 048
     Dates: start: 20170208
  4. IBRANCE [Suspect]
     Active Substance: PALBOCICLIB
     Dosage: 125 MG, CYCLIC (ONE CAPSULE PER DAY DURING 21 DAYS)
     Route: 048
     Dates: start: 20170311
  5. IBRANCE [Suspect]
     Active Substance: PALBOCICLIB
     Dosage: 125 MG, CYCLIC (ONE CAPSULE PER DAY DURING 21 DAYS)
     Route: 048
     Dates: start: 20170630, end: 20170720
  6. IBRANCE [Suspect]
     Active Substance: PALBOCICLIB
     Dosage: 125 MG, CYCLIC (ONE CAPSULE PER DAY DURING 21 DAYS)
     Route: 048
     Dates: end: 20170301

REACTIONS (7)
  - Rash [Recovered/Resolved]
  - Renal impairment [Not Recovered/Not Resolved]
  - Blood urea increased [Recovering/Resolving]
  - Influenza [Unknown]
  - Skin lesion [Recovered/Resolved]
  - Neutropenia [Not Recovered/Not Resolved]
  - Blood creatinine increased [Recovering/Resolving]

NARRATIVE: CASE EVENT DATE: 20170305
